FAERS Safety Report 8261289-4 (Version None)
Quarter: 2012Q2

REPORT INFORMATION
  Report Type: 
  Country: None (occurrence: None)
  Receive Date: 20120405
  Receipt Date: 20120329
  Transmission Date: 20120825
  Serious: Yes (Hospitalization)
  Sender: FDA-Public Use
  Company Number: US-ABBOTT-12P-163-0919604-00

PATIENT
  Sex: Female
  Weight: 77.18 kg

DRUGS (19)
  1. CARAFATE [Concomitant]
     Indication: GASTRIC DISORDER
  2. CYMBALTA [Concomitant]
     Indication: DEPRESSION
  3. FENTANYL CITRATE [Concomitant]
     Indication: RHEUMATOID ARTHRITIS
     Dosage: PATCH
  4. LASIX [Concomitant]
     Indication: HYPERTENSION
  5. BYSTOILC [Concomitant]
     Indication: HYPERTENSION
  6. PROTONIX [Concomitant]
     Indication: GASTRIC DISORDER
  7. DIOVAN [Concomitant]
     Indication: HYPERTENSION
  8. POTASSIUM CHLORIDE [Concomitant]
     Indication: HYPERTENSION
  9. CALCIUM WITH VITAMIN D [Concomitant]
     Indication: MINERAL SUPPLEMENTATION
  10. PREMARIN [Concomitant]
     Indication: HORMONE REPLACEMENT THERAPY
  11. DETROL LA [Concomitant]
     Indication: STRESS URINARY INCONTINENCE
  12. MULTI-VITAMIN [Concomitant]
     Indication: VITAMIN SUPPLEMENTATION
  13. SINGULAIR [Concomitant]
     Indication: HYPERSENSITIVITY
  14. HUMIRA [Suspect]
     Indication: RHEUMATOID ARTHRITIS
     Dates: start: 20080101, end: 20120305
  15. FLORANEX [Concomitant]
     Indication: PRODUCT USED FOR UNKNOWN INDICATION
  16. HUMIRA [Suspect]
     Dates: start: 20060801, end: 20080101
  17. PREDNISONE TAB [Concomitant]
     Indication: PRODUCT USED FOR UNKNOWN INDICATION
  18. AMLODIPINE [Concomitant]
     Indication: HYPERTENSION
  19. FISH OIL [Concomitant]
     Indication: SUPPLEMENTATION THERAPY

REACTIONS (4)
  - DIVERTICULITIS [None]
  - COLITIS [None]
  - ASTHENIA [None]
  - UPPER RESPIRATORY TRACT INFECTION [None]
